FAERS Safety Report 13157946 (Version 1)
Quarter: 2017Q1

REPORT INFORMATION
  Report Type: Spontaneous
  Country: US (occurrence: US)
  Receive Date: 20170124
  Receipt Date: 20170124
  Transmission Date: 20170428
  Serious: Yes (Other)
  Sender: FDA-Public Use
  Company Number: None

PATIENT
  Age: 42 Year
  Sex: Female
  Weight: 96.75 kg

DRUGS (10)
  1. B5 [Concomitant]
  2. AQUAPHOR [Suspect]
     Active Substance: PETROLATUM
     Indication: CHAPPED LIPS
     Route: 061
     Dates: start: 20161223, end: 20170109
  3. LISINOPRIL. [Concomitant]
     Active Substance: LISINOPRIL
  4. GIANVI [Concomitant]
     Active Substance: DROSPIRENONE\ETHINYL ESTRADIOL
  5. OMEGA 3/6/9 [Concomitant]
  6. VASELINE PURE [Suspect]
     Active Substance: PETROLATUM
     Indication: CHAPPED LIPS
     Route: 061
     Dates: start: 20170109, end: 20170124
  7. VITAMIN B12 [Concomitant]
     Active Substance: CYANOCOBALAMIN
  8. DAPZONE [Concomitant]
  9. VITAMIN D [Concomitant]
     Active Substance: CHOLECALCIFEROL
  10. MULTIVITAMIN [Concomitant]
     Active Substance: VITAMINS

REACTIONS (3)
  - Lip oedema [None]
  - Lip blister [None]
  - Oropharyngeal pain [None]

NARRATIVE: CASE EVENT DATE: 20170107
